FAERS Safety Report 13134835 (Version 1)
Quarter: 2017Q1

REPORT INFORMATION
  Report Type: Spontaneous
  Country: JP (occurrence: JP)
  Receive Date: 20170120
  Receipt Date: 20170120
  Transmission Date: 20170428
  Serious: Yes (Hospitalization, Other)
  Sender: FDA-Public Use
  Company Number: JP-BAYER-2017-007603

PATIENT
  Age: 68 Year
  Sex: Male
  Weight: 40 kg

DRUGS (2)
  1. BAYASPIRIN 100 MG [Suspect]
     Active Substance: ASPIRIN
     Dosage: 100 MG, QD
     Route: 048
  2. PREDONINE [Interacting]
     Active Substance: PREDNISOLONE
     Dosage: 1 MG, QD
     Route: 048

REACTIONS (3)
  - Aneurysm [Recovered/Resolved]
  - Femoral hernia incarcerated [Recovered/Resolved]
  - Small intestinal haemorrhage [Recovered/Resolved]
